FAERS Safety Report 21376414 (Version 1)
Quarter: 2022Q3

REPORT INFORMATION
  Report Type: Report from Study
  Country: ES (occurrence: ES)
  Receive Date: 20220926
  Receipt Date: 20220926
  Transmission Date: 20221027
  Serious: Yes (Other)
  Sender: FDA-Public Use
  Company Number: ES-ELI_LILLY_AND_COMPANY-ES202209004066

PATIENT
  Age: 72 Year
  Sex: Female

DRUGS (6)
  1. LOPERAMIDE HYDROCHLORIDE [Suspect]
     Active Substance: LOPERAMIDE HYDROCHLORIDE
     Indication: Diarrhoea
     Dosage: 3 DOSAGE FORM, SINGLE
     Route: 048
  2. ABEMACICLIB [Suspect]
     Active Substance: ABEMACICLIB
     Indication: Breast cancer metastatic
     Dosage: 150 MG, BID
     Route: 048
  3. ABEMACICLIB [Suspect]
     Active Substance: ABEMACICLIB
     Dosage: 100 MG, BID
     Route: 048
  4. ABEMACICLIB [Suspect]
     Active Substance: ABEMACICLIB
     Dosage: 150 MG, SINGLE
     Route: 048
  5. FASLODEX [Concomitant]
     Active Substance: FULVESTRANT
     Indication: Product used for unknown indication
     Dosage: UNK UNK, MONTHLY (1/M)
     Route: 065
  6. FASLODEX [Concomitant]
     Active Substance: FULVESTRANT
     Dosage: UNK UNK, OTHER (EVERY 14 DAYS)

REACTIONS (12)
  - Malignant neoplasm progression [Unknown]
  - Dysgeusia [Not Recovered/Not Resolved]
  - Back pain [Recovered/Resolved]
  - Gastrointestinal pain [Unknown]
  - Sleep disorder due to general medical condition, insomnia type [Recovered/Resolved]
  - Pharyngitis [Not Recovered/Not Resolved]
  - Dysuria [Unknown]
  - Abdominal pain [Unknown]
  - Diarrhoea [Recovering/Resolving]
  - Daydreaming [Unknown]
  - Infrequent bowel movements [Unknown]
  - Dyschezia [Unknown]

NARRATIVE: CASE EVENT DATE: 20220828
